FAERS Safety Report 16902893 (Version 2)
Quarter: 2020Q1

REPORT INFORMATION
  Report Type: Spontaneous
  Country: JP (occurrence: JP)
  Receive Date: 20191010
  Receipt Date: 20200110
  Transmission Date: 20200409
  Serious: No
  Sender: FDA-Public Use
  Company Number: JP-BEH-2019107926

PATIENT
  Age: 8 Year
  Sex: Female
  Weight: 30 kg

DRUGS (6)
  1. FIBROGAMMIN P [Suspect]
     Active Substance: FACTOR XIII CONCENTRATE (HUMAN)
     Dosage: UNK
     Route: 042
     Dates: start: 20191003, end: 20191005
  2. PREDONINE [PREDNISOLONE ACETATE] [Concomitant]
     Active Substance: PREDNISOLONE ACETATE
     Dosage: 10 MILLIGRAM, TID
     Route: 042
     Dates: start: 20191004, end: 20191005
  3. FIBROGAMMIN P [Suspect]
     Active Substance: FACTOR XIII CONCENTRATE (HUMAN)
     Indication: VASCULITIS
     Dosage: 15 MILLILITER, QD
     Route: 042
     Dates: start: 20191003, end: 20191005
  4. PREDNISOLONE. [Concomitant]
     Active Substance: PREDNISOLONE
     Dosage: 5 MILLIGRAM, TID
     Route: 048
     Dates: start: 20191005, end: 20191017
  5. FIBROGAMMIN P [Suspect]
     Active Substance: FACTOR XIII CONCENTRATE (HUMAN)
     Dosage: UNK
     Route: 042
     Dates: start: 20191003, end: 20191005
  6. FIBROGAMMIN P [Suspect]
     Active Substance: FACTOR XIII CONCENTRATE (HUMAN)
     Dosage: UNK
     Route: 042
     Dates: start: 20191003, end: 20191005

REACTIONS (3)
  - Product use in unapproved indication [Unknown]
  - Vascular pain [Recovered/Resolved]
  - No adverse event [Unknown]

NARRATIVE: CASE EVENT DATE: 20191003
